FAERS Safety Report 9476184 (Version 1)
Quarter: 2013Q3

REPORT INFORMATION
  Report Type: Report from Study
  Country: MX (occurrence: MX)
  Receive Date: 20130826
  Receipt Date: 20130826
  Transmission Date: 20140515
  Serious: Yes (Other)
  Sender: FDA-Public Use
  Company Number: MX-SANOFI-AVENTIS-2013SA083502

PATIENT
  Age: 42 Year
  Sex: Female
  Weight: 73 kg

DRUGS (4)
  1. TRAMADOL [Concomitant]
     Indication: ANKYLOSING SPONDYLITIS
     Route: 048
     Dates: start: 201206
  2. ARAVA [Suspect]
     Indication: ANKYLOSING SPONDYLITIS
     Dosage: STRENGTH: 100 MG TABLET
     Route: 048
     Dates: start: 201206
  3. ARAVA [Suspect]
     Indication: ANKYLOSING SPONDYLITIS
     Dosage: STRENGTH: 20 MG TABLET
     Route: 048
     Dates: start: 201206
  4. NAXEN [Concomitant]
     Indication: ANKYLOSING SPONDYLITIS
     Route: 048
     Dates: start: 201206

REACTIONS (4)
  - Ankylosing spondylitis [Recovered/Resolved]
  - Inappropriate schedule of drug administration [Unknown]
  - Off label use [Unknown]
  - Muscle contracture [Recovered/Resolved]
